FAERS Safety Report 4762633-2 (Version None)
Quarter: 2005Q3

REPORT INFORMATION
  Report Type: 
  Country: None (occurrence: None)
  Receive Date: 20050907
  Receipt Date: 20050901
  Transmission Date: 20060218
  Serious: Yes (Life-Threatening)
  Sender: FDA-Public Use
  Company Number: JP-JPN-A20052091

PATIENT
  Age: 69 Year
  Sex: Female

DRUGS (7)
  1. ZANTAC [Suspect]
     Dosage: 75MG TWICE PER DAY
     Route: 048
     Dates: end: 20050829
  2. MEVALOTIN [Suspect]
     Indication: HYPERLIPIDAEMIA
     Dosage: 10MG TWICE PER DAY
     Route: 048
     Dates: end: 20050829
  3. CONIEL [Suspect]
     Indication: HYPERTENSION
     Dosage: 4MG PER DAY
     Route: 048
     Dates: end: 20050829
  4. INDERAL [Suspect]
     Indication: HYPERTENSION
     Dosage: 10MG TWICE PER DAY
     Route: 048
     Dates: end: 20050829
  5. COMELIAN [Suspect]
     Dosage: 100MG THREE TIMES PER DAY
     Route: 048
     Dates: end: 20050829
  6. DEPAS [Suspect]
     Dosage: .5MG PER DAY
     Route: 048
     Dates: end: 20050829
  7. SEVEN EYP [Suspect]
     Dosage: 1U THREE TIMES PER DAY
     Route: 048
     Dates: end: 20050829

REACTIONS (8)
  - ANAPHYLACTIC SHOCK [None]
  - BODY TEMPERATURE DECREASED [None]
  - CARDIOGENIC SHOCK [None]
  - CHEST PAIN [None]
  - CYANOSIS [None]
  - ELECTROCARDIOGRAM ABNORMAL [None]
  - ELECTROCARDIOGRAM ST SEGMENT DEPRESSION [None]
  - VASCULAR RESISTANCE SYSTEMIC DECREASED [None]
